FAERS Safety Report 14760286 (Version 1)
Quarter: 2018Q2

REPORT INFORMATION
  Report Type: Spontaneous
  Country: US (occurrence: US)
  Receive Date: 20180414
  Receipt Date: 20180414
  Transmission Date: 20180711
  Serious: No
  Sender: FDA-Public Use
  Company Number: US-JNJFOC-20180325174

PATIENT
  Age: 12 Year
  Sex: Male
  Weight: 44.45 kg

DRUGS (2)
  1. CHILDRENS MOTRIN [Suspect]
     Active Substance: IBUPROFEN
     Indication: ARTHRALGIA
     Route: 065
     Dates: start: 20180311, end: 20180315
  2. CHILDRENS MOTRIN [Suspect]
     Active Substance: IBUPROFEN
     Route: 065

REACTIONS (2)
  - Abdominal pain upper [Not Recovered/Not Resolved]
  - Drug administered to patient of inappropriate age [Unknown]

NARRATIVE: CASE EVENT DATE: 20180311
